FAERS Safety Report 6240515-7 (Version None)
Quarter: 2009Q2

REPORT INFORMATION
  Report Type: 
  Country: None (occurrence: None)
  Receive Date: 20090623
  Receipt Date: 20090409
  Transmission Date: 20091009
  Serious: No
  Sender: FDA-Public Use
  Company Number: US-ASTRAZENECA-2009UW08979

PATIENT
  Age: 101 Year
  Sex: Male

DRUGS (4)
  1. PULMICORT RESPULES [Suspect]
     Route: 055
  2. PULMICORT RESPULES [Suspect]
     Route: 055
  3. PRILOSEC DELAYED RELEASE [Suspect]
     Indication: GASTROOESOPHAGEAL REFLUX DISEASE
     Route: 048
  4. LASIX [Concomitant]

REACTIONS (2)
  - RHINORRHOEA [None]
  - URTICARIA [None]
